FAERS Safety Report 21961809 (Version 1)
Quarter: 2023Q1

REPORT INFORMATION
  Report Type: Spontaneous
  Country: US (occurrence: None)
  Receive Date: 20230204
  Receipt Date: 20230204
  Transmission Date: 20230417
  Serious: Yes (Other)
  Sender: FDA-Public Use
  Company Number: None

PATIENT
  Age: 15 Year
  Sex: Male
  Weight: 96.75 kg

DRUGS (2)
  1. PERMETHRIN [Suspect]
     Active Substance: PERMETHRIN
     Indication: Bite
     Dosage: FREQUENCY : AT BEDTIME;?
     Route: 061
     Dates: start: 20230203, end: 20230203
  2. VITAMIN D [Concomitant]
     Active Substance: VITAMIN D NOS

REACTIONS (1)
  - Vomiting [None]

NARRATIVE: CASE EVENT DATE: 20230204
